FAERS Safety Report 11594065 (Version 2)
Quarter: 2016Q1

REPORT INFORMATION
  Report Type: Spontaneous
  Country: GB (occurrence: GB)
  Receive Date: 20151005
  Receipt Date: 20160317
  Transmission Date: 20160525
  Serious: Yes (Death, Congenital Anomaly)
  Sender: FDA-Public Use
  Company Number: GB-TEVA-597171ACC

PATIENT
  Age: 15 Hour

DRUGS (6)
  1. VITAMIN D [Concomitant]
     Active Substance: CHOLECALCIFEROL
     Route: 064
  2. METFORMIN [Concomitant]
     Active Substance: METFORMIN HYDROCHLORIDE
     Route: 064
  3. LOSARTAN. [Suspect]
     Active Substance: LOSARTAN
     Indication: HYPERTENSION
     Dosage: NOT KNOWN.
     Route: 064
     Dates: start: 20140602, end: 20150608
  4. DAPAGLIFLOZIN [Suspect]
     Active Substance: DAPAGLIFLOZIN
     Indication: TYPE 2 DIABETES MELLITUS
     Route: 064
     Dates: end: 20150608
  5. THYROXINE [Concomitant]
     Active Substance: LEVOTHYROXINE
     Route: 064
  6. SIMVASTATIN. [Concomitant]
     Active Substance: SIMVASTATIN
     Dosage: STOPPED BEFORE CONCEPTION.
     Route: 064
     Dates: start: 201503, end: 201503

REACTIONS (1)
  - Encephalocele [Fatal]

NARRATIVE: CASE EVENT DATE: 20150807
